FAERS Safety Report 10241530 (Version 1)
Quarter: 2014Q2

REPORT INFORMATION
  Report Type: Spontaneous
  Country: BR (occurrence: BR)
  Receive Date: 20140617
  Receipt Date: 20140617
  Transmission Date: 20141212
  Serious: Yes (Other)
  Sender: FDA-Public Use
  Company Number: BR-SA-2014SA060599

PATIENT
  Age: 29 Year
  Sex: Female
  Weight: 78 kg

DRUGS (2)
  1. CLEXANE [Suspect]
     Indication: DEEP VEIN THROMBOSIS
     Dosage: SYRINGE
     Route: 058
     Dates: start: 20140508
  2. MATERNA [Concomitant]
     Indication: PREGNANCY
     Dosage: SINCE 6 MONTH OF PREGNANCY
     Route: 048

REACTIONS (2)
  - Oligohydramnios [Unknown]
  - Exposure during pregnancy [Unknown]
